FAERS Safety Report 15354525 (Version 4)
Quarter: 2018Q4

REPORT INFORMATION
  Report Type: Spontaneous
  Country: DE (occurrence: DE)
  Receive Date: 20180906
  Receipt Date: 20181004
  Transmission Date: 20190204
  Serious: Yes (Other)
  Sender: FDA-Public Use
  Company Number: DE-BRISTOL-MYERS SQUIBB COMPANY-BMS-2018-081759

PATIENT
  Age: 68 Year
  Sex: Female
  Weight: 86.2 kg

DRUGS (1)
  1. ELIQUIS [Suspect]
     Active Substance: APIXABAN
     Indication: CEREBROVASCULAR ACCIDENT PROPHYLAXIS
     Dosage: 2.5 MG, BID
     Route: 048
     Dates: start: 2014

REACTIONS (4)
  - Ankle fracture [Recovered/Resolved]
  - Prescribed underdose [Unknown]
  - Fall [Recovered/Resolved]
  - Inflammation [Recovered/Resolved]
